FAERS Safety Report 18961321 (Version 1)
Quarter: 2021Q1

REPORT INFORMATION
  Report Type: Report from Study
  Country: US (occurrence: US)
  Receive Date: 20210303
  Receipt Date: 20210303
  Transmission Date: 20210420
  Serious: No
  Sender: FDA-Public Use
  Company Number: US-AGIOS-2102US02548

PATIENT

DRUGS (5)
  1. COREG [Concomitant]
     Active Substance: CARVEDILOL
  2. LIPITOR [Concomitant]
     Active Substance: ATORVASTATIN CALCIUM
  3. TIBSOVO [Suspect]
     Active Substance: IVOSIDENIB
     Indication: REFRACTORY ANAEMIA WITH AN EXCESS OF BLASTS
     Dosage: 500 MILLIGRAM (TWO 250MG TABLETS), QD
     Route: 048
  4. LISINOPRIL. [Concomitant]
     Active Substance: LISINOPRIL
  5. LEVAQUIN [Concomitant]
     Active Substance: LEVOFLOXACIN

REACTIONS (2)
  - Off label use [Not Recovered/Not Resolved]
  - Headache [Unknown]
